FAERS Safety Report 17082926 (Version 2)
Quarter: 2019Q4

REPORT INFORMATION
  Report Type: Spontaneous
  Country: DE (occurrence: DE)
  Receive Date: 20191127
  Receipt Date: 20191202
  Transmission Date: 20200122
  Serious: Yes (Hospitalization)
  Sender: FDA-Public Use
  Company Number: DE-MYLANLABS-2019M1115264

PATIENT
  Age: 68 Year
  Sex: Male
  Weight: 70 kg

DRUGS (14)
  1. MCP                                /00041902/ [Concomitant]
     Active Substance: METOCLOPRAMIDE HYDROCHLORIDE
     Dosage: B.B., TABLETTEN
     Route: 048
  2. NITROLINGUAL [Concomitant]
     Active Substance: NITROGLYCERIN
     Dosage: B.B., SPRAY
     Route: 048
  3. ALLOPURINOL. [Concomitant]
     Active Substance: ALLOPURINOL
     Dosage: 100 MILLIGRAM, QD (100 MG, 0-1-0, TABLETTEN)
     Route: 048
  4. BAYOTENSIN [Concomitant]
     Active Substance: NITRENDIPINE
     Dosage: B.B.
     Route: 048
  5. PREDNISOLON                        /00016201/ [Concomitant]
     Active Substance: PREDNISOLONE
     Dosage: 20 MILLIGRAM, QD (20 MG, 1-0-0, TABLETTEN)
     Route: 048
  6. BOSUTINIB [Concomitant]
     Active Substance: BOSUTINIB
     Dosage: 100 MG, 3-0-0, TABLETTEN
     Route: 048
  7. FUROSEMID                          /00032601/ [Concomitant]
     Active Substance: FUROSEMIDE
     Dosage: 40 MILLIGRAM, QD (40 MG, 1-0-0, TABLETTEN)
     Route: 048
  8. AMLODIPINE [Suspect]
     Active Substance: AMLODIPINE BESYLATE
     Indication: PRODUCT USED FOR UNKNOWN INDICATION
     Dosage: 5 MILLIGRAM, QD (5 MG, 1-0-0, TABLETTEN)
     Route: 048
  9. ISDN [Concomitant]
     Dosage: 60 MILLIGRAM, QD (60 MG, 0-1-0, TABLETTEN)
     Route: 048
  10. RISPERIDON [Concomitant]
     Active Substance: RISPERIDONE
     Dosage: 1 MILLIGRAM, QD (1 MG, 0-0-1)
     Route: 048
  11. BISOPROLOL [Suspect]
     Active Substance: BISOPROLOL
     Indication: PRODUCT USED FOR UNKNOWN INDICATION
     Dosage: 2.5 MILLIGRAM, BID (2.5 MG, 1-0-1, TABLETTEN)
     Route: 048
  12. SIMVASTATIN. [Concomitant]
     Active Substance: SIMVASTATIN
     Dosage: 20 MILLIGRAM, QD (20 MG, 0-0-1, TABLETTEN)
     Route: 048
  13. ENALAPRIL [Suspect]
     Active Substance: ENALAPRIL
     Indication: PRODUCT USED FOR UNKNOWN INDICATION
     Dosage: 10 MILLIGRAM (10 MG, 1/2-0-1/2, TABLETTEN)
     Route: 048
  14. CLOPIDOGREL [Concomitant]
     Active Substance: CLOPIDOGREL BISULFATE
     Dosage: 75 MILLIGRAM, QD (75 MG, 0-1-0, TABLETTEN)
     Route: 048

REACTIONS (4)
  - Hypotension [Unknown]
  - Chest pain [Unknown]
  - Pleural effusion [Unknown]
  - Syncope [Unknown]
